FAERS Safety Report 8156549-1 (Version None)
Quarter: 2012Q1

REPORT INFORMATION
  Report Type: 
  Country: None (occurrence: None)
  Receive Date: 20120222
  Receipt Date: 20120209
  Transmission Date: 20120608
  Serious: Yes (Other)
  Sender: FDA-Public Use
  Company Number: DE-ACTELION-A-CH2011-59044

PATIENT
  Sex: Male

DRUGS (7)
  1. ZAVESCA [Suspect]
     Indication: NIEMANN-PICK DISEASE
     Dosage: 75 MG, BID
     Route: 048
     Dates: start: 20090501, end: 20111207
  2. HYDROCHLOROTHIAZIDE [Concomitant]
  3. ZAVESCA [Suspect]
     Dosage: 50 MG, BID
     Route: 048
     Dates: start: 20090301, end: 20090501
  4. SPIRONOLACTONE [Concomitant]
  5. URSO FALK [Concomitant]
  6. SINGULAIR [Concomitant]
  7. KANAVIT [Concomitant]

REACTIONS (7)
  - PAIN [None]
  - HYPERTONIA [None]
  - NIEMANN-PICK DISEASE [None]
  - SALIVARY HYPERSECRETION [None]
  - GASTROSTOMY TUBE INSERTION [None]
  - MUSCULOSKELETAL STIFFNESS [None]
  - DISEASE PROGRESSION [None]
